FAERS Safety Report 18363653 (Version 1)
Quarter: 2020Q4

REPORT INFORMATION
  Report Type: Spontaneous
  Country: CA (occurrence: CA)
  Receive Date: 20201009
  Receipt Date: 20201009
  Transmission Date: 20210114
  Serious: Yes (Other)
  Sender: FDA-Public Use
  Company Number: CA-SUN PHARMACEUTICAL INDUSTRIES LTD-2020R1-263707

PATIENT
  Age: 75 Year
  Sex: Female

DRUGS (1)
  1. TARO-PREGABALIN [Suspect]
     Active Substance: PREGABALIN
     Indication: PRODUCT USED FOR UNKNOWN INDICATION
     Dosage: 75 MILLIGRAM, 2 EVERY 1 DAYS
     Route: 048

REACTIONS (1)
  - Dizziness [Unknown]
